FAERS Safety Report 6945975-1 (Version None)
Quarter: 2010Q3

REPORT INFORMATION
  Report Type: 
  Country: None (occurrence: None)
  Receive Date: 20100827
  Receipt Date: 20100825
  Transmission Date: 20110219
  Serious: Yes (Hospitalization, Disabling)
  Sender: FDA-Public Use
  Company Number: US-CEPHALON-2010003956

PATIENT
  Sex: Male
  Weight: 106 kg

DRUGS (15)
  1. TREANDA [Suspect]
     Indication: CHRONIC LYMPHOCYTIC LEUKAEMIA RECURRENT
     Route: 042
     Dates: start: 20100316, end: 20100609
  2. HYTRIN [Concomitant]
     Dates: start: 20070101, end: 20100510
  3. ALLOPURINOL [Concomitant]
     Dates: start: 20091015
  4. COMPAZINE [Concomitant]
     Dates: start: 20100316
  5. DIAZEPAM [Concomitant]
     Dates: start: 20100301
  6. FLOMAX [Concomitant]
     Dates: start: 20091117
  7. FUROSEMIDE [Concomitant]
     Dates: start: 20100427
  8. LEVOFLOXACIN [Concomitant]
     Dates: start: 20100324
  9. OMEPRAZOLE [Concomitant]
     Dates: start: 20081223
  10. PANTOPRAZOLE SODIUM [Concomitant]
     Dates: start: 20100512
  11. TYLENOL W/ CODEINE NO. 3 [Concomitant]
     Dates: start: 20080429
  12. ZOLPIDEM TARTRATE [Concomitant]
     Dates: start: 20080528
  13. AVODART [Concomitant]
  14. COLACE [Concomitant]
  15. NEULASTA [Concomitant]
     Route: 058
     Dates: start: 20100301, end: 20100610

REACTIONS (5)
  - CHILLS [None]
  - HYPERHIDROSIS [None]
  - MALAISE [None]
  - PULMONARY HYPERTENSION [None]
  - PYREXIA [None]
